FAERS Safety Report 8573238-X (Version None)
Quarter: 2012Q3

REPORT INFORMATION
  Report Type: 
  Country: None (occurrence: None)
  Receive Date: 20120806
  Receipt Date: 20120730
  Transmission Date: 20120928
  Serious: Yes (Other)
  Sender: FDA-Public Use
  Company Number: BR-PFIZER INC-2010061605

PATIENT
  Age: 44 Year
  Sex: Female

DRUGS (6)
  1. FLUOXETINE [Concomitant]
     Indication: DEPRESSION
     Dosage: UNK
  2. LYRICA [Suspect]
     Dosage: 75 MG, 1X/DAY
     Route: 048
     Dates: start: 20100101
  3. CLONAZEPAM [Concomitant]
     Indication: DEPRESSION
     Dosage: UNK
  4. ALPRAZOLAM [Concomitant]
     Indication: DEPRESSION
     Dosage: UNK
  5. LYRICA [Suspect]
     Indication: NEURALGIA
     Dosage: 75 MG, 2X/DAY (EVERY 12 HOURS)
     Route: 048
  6. LYRICA [Suspect]
     Indication: FIBROMYALGIA
     Dosage: 150 MG, UNK
     Route: 048
     Dates: end: 20100515

REACTIONS (11)
  - DEPRESSION [None]
  - EYE DISORDER [None]
  - LISTLESS [None]
  - ALTERED STATE OF CONSCIOUSNESS [None]
  - DIZZINESS [None]
  - SWELLING FACE [None]
  - EYE SWELLING [None]
  - SPEECH DISORDER [None]
  - FEELING HOT [None]
  - DRUG INEFFECTIVE [None]
  - CRYING [None]
